FAERS Safety Report 23921716 (Version 2)
Quarter: 2024Q3

REPORT INFORMATION
  Report Type: Spontaneous
  Country: JP (occurrence: JP)
  Receive Date: 20240530
  Receipt Date: 20240716
  Transmission Date: 20241017
  Serious: Yes (Death, Hospitalization, Other)
  Sender: MERCK
  Company Number: JP-MSD-M2024-19612

PATIENT
  Age: 69 Year
  Sex: Female

DRUGS (3)
  1. KEYTRUDA [Suspect]
     Active Substance: PEMBROLIZUMAB
     Indication: Uterine cancer
     Dosage: 200 MILLIGRAM, Q3W
     Route: 041
  2. LENVATINIB MESYLATE [Concomitant]
     Active Substance: LENVATINIB MESYLATE
     Indication: Uterine cancer
     Dosage: 20 MILLIGRAM, QD
     Route: 048
  3. LENVATINIB MESYLATE [Concomitant]
     Active Substance: LENVATINIB MESYLATE
     Dosage: 14 MILLIGRAM, QD
     Route: 048

REACTIONS (14)
  - Death [Fatal]
  - Cardiomegaly [Unknown]
  - Lung opacity [Unknown]
  - Pulmonary oedema [Unknown]
  - Electrocardiogram T wave inversion [Unknown]
  - Ventricular hypokinesia [Unknown]
  - Ascites [Unknown]
  - Pleural effusion [Unknown]
  - Renal impairment [Unknown]
  - C-reactive protein increased [Unknown]
  - Hepatic enzyme increased [Unknown]
  - Cough [Unknown]
  - Oropharyngeal pain [Unknown]
  - Chest pain [Unknown]
